FAERS Safety Report 4336280-0 (Version None)
Quarter: 2004Q2

REPORT INFORMATION
  Report Type: 
  Country: None (occurrence: None)
  Receive Date: 20040407
  Receipt Date: 20040325
  Transmission Date: 20050107
  Serious: Yes (Hospitalization, Other)
  Sender: FDA-Public Use
  Company Number: USA040362427

PATIENT
  Age: 71 Year
  Sex: Female
  Weight: 89 kg

DRUGS (11)
  1. FORTEO [Suspect]
     Indication: OSTEOPOROSIS
     Dosage: 20 UG/1 DAY
     Dates: start: 20031201, end: 20040311
  2. GLUCOPHAGE [Concomitant]
  3. ENALAPRIL MALEATE [Concomitant]
  4. CELEBREX [Concomitant]
  5. AMIODARONE HCL [Concomitant]
  6. ELAVIL [Concomitant]
  7. ASPIRIN [Concomitant]
  8. VALIUM [Concomitant]
  9. APO-METOPROLOL (METOPROLOL TARTRATE) [Concomitant]
  10. ALTACE [Concomitant]
  11. ZOSTRIX (CAPSAICIN) [Concomitant]

REACTIONS (8)
  - AMNESIA [None]
  - ASTHENIA [None]
  - CHROMATURIA [None]
  - DEHYDRATION [None]
  - LOSS OF CONSCIOUSNESS [None]
  - PAIN IN EXTREMITY [None]
  - STRESS SYMPTOMS [None]
  - TREMOR [None]
